FAERS Safety Report 5761464-4 (Version None)
Quarter: 2008Q2

REPORT INFORMATION
  Report Type: 
  Country: None (occurrence: None)
  Receive Date: 20080606
  Receipt Date: 20080306
  Transmission Date: 20081010
  Serious: Yes (Hospitalization)
  Sender: FDA-Public Use
  Company Number: US-BOEHRINGER INGELHEIM GMBH, GERMANY-2005-BP-21020BP

PATIENT
  Sex: Female
  Weight: 85 kg

DRUGS (81)
  1. MIRAPEX [Suspect]
     Indication: RESTLESS LEGS SYNDROME
     Route: 048
     Dates: start: 20001211, end: 20051001
  2. MIRAPEX [Suspect]
     Dates: start: 20051001, end: 20051001
  3. PAXIL [Concomitant]
     Route: 048
  4. TRAZODONE HCL [Concomitant]
     Indication: SLEEP DISORDER
     Route: 048
  5. TRAZODONE HCL [Concomitant]
     Indication: DEPRESSION
  6. WELLBUTRIN [Concomitant]
     Route: 048
  7. ADVAIR DISKUS 100/50 [Concomitant]
     Indication: ASTHMA
  8. PROPOXYPHENE HCL AND ACETAMINOPHEN [Concomitant]
     Indication: RESTLESS LEGS SYNDROME
  9. FLUTICASONE PROPIONATE SPRAY [Concomitant]
     Indication: SINUS DISORDER
  10. PROAIR HFA [Concomitant]
     Indication: ASTHMA
     Route: 055
  11. DEPAKOTE ER [Concomitant]
     Indication: DEPRESSION
  12. PANLOR [Concomitant]
  13. MIDRIN [Concomitant]
  14. TYLENOL [Concomitant]
  15. ESTRACE [Concomitant]
  16. PREVACID [Concomitant]
  17. ALLEGRA [Concomitant]
  18. ALBUTEROL [Concomitant]
  19. AZMACORT [Concomitant]
  20. VITAMIN B-12 [Concomitant]
  21. VANIQA [Concomitant]
  22. AVELOX [Concomitant]
  23. DIFLUCAN [Concomitant]
  24. METHYLPREDNISOLONE [Concomitant]
  25. TERAZOL 7 [Concomitant]
  26. CEFACLOR [Concomitant]
  27. ULTRAM [Concomitant]
  28. METROGEL [Concomitant]
  29. SODIUM CHLORIDE [Concomitant]
  30. ZITHROMAX [Concomitant]
  31. MIDAMOR [Concomitant]
  32. CYANOCOBALAMIN [Concomitant]
  33. NEXIUM [Concomitant]
  34. NIZORAL [Concomitant]
  35. BACITRACIN [Concomitant]
  36. AMOXICILLIN [Concomitant]
  37. NASONEX [Concomitant]
  38. BIAXIN [Concomitant]
  39. TRIVENT DM [Concomitant]
  40. CIPROFLOXACIN HCL [Concomitant]
  41. NITROFURAN [Concomitant]
  42. FIORICET/CODEINE [Concomitant]
  43. MUPIROCIN OINTMENT [Concomitant]
  44. EFFEXOR [Concomitant]
  45. PULMICORT [Concomitant]
  46. NITROGLYCERIN [Concomitant]
  47. MORPHINE [Concomitant]
  48. CLARITIN [Concomitant]
  49. PROTONIX [Concomitant]
  50. KETOCONAZOLE [Concomitant]
  51. ASPIRIN [Concomitant]
  52. TEQUIN [Concomitant]
  53. AMBIEN [Concomitant]
  54. CARDIZEM [Concomitant]
  55. LASIX [Concomitant]
  56. LOTREL [Concomitant]
  57. ALEVE [Concomitant]
  58. ZOCOR [Concomitant]
  59. CALCIUM [Concomitant]
  60. MULTI-VITAMIN [Concomitant]
  61. AFRIN [Concomitant]
  62. NEURONTIN [Concomitant]
     Indication: TRIGEMINAL NERVE DISORDER
  63. TRAZODONE HCL [Concomitant]
  64. NIRAVAM [Concomitant]
  65. AMIDINE [Concomitant]
  66. ISOMETHEPTENE/APA/DICHLORALPHENEAZONE [Concomitant]
  67. BUTALBITAL ACETAMINOPHEN AND CAFFEINE [Concomitant]
  68. ESTRADIOL [Concomitant]
  69. BRONCHO SALINE [Concomitant]
  70. TRAMADOL HCL [Concomitant]
  71. PAROXETINE HCL [Concomitant]
     Indication: DEPRESSION
  72. FLUCONAZOLE [Concomitant]
  73. PANMIST DM [Concomitant]
  74. PREVACID [Concomitant]
  75. MAALOX [Concomitant]
  76. MONOSTAT [Concomitant]
  77. PRILOSEC [Concomitant]
  78. DARVOCET [Concomitant]
  79. PNEUMOCOCCAL VACCINE [Concomitant]
     Dates: start: 19970728
  80. PREDNISONE TAB [Concomitant]
  81. KLONOPIN [Concomitant]

REACTIONS (8)
  - BIPOLAR DISORDER [None]
  - COMPULSIVE SHOPPING [None]
  - DEPRESSION SUICIDAL [None]
  - EMOTIONAL DISTRESS [None]
  - MANIA [None]
  - OBSESSIVE-COMPULSIVE DISORDER [None]
  - PAIN [None]
  - PATHOLOGICAL GAMBLING [None]
